FAERS Safety Report 9821036 (Version 4)
Quarter: 2014Q3

REPORT INFORMATION
  Report Type: Report from Study
  Country: CA (occurrence: CA)
  Receive Date: 20140116
  Receipt Date: 20140723
  Transmission Date: 20150326
  Serious: Yes (Hospitalization)
  Sender: FDA-Public Use
  Company Number: CA-JNJFOC-20140104738

PATIENT
  Age: 17 Year
  Sex: Male
  Weight: 57.5 kg

DRUGS (5)
  1. REMICADE [Suspect]
     Active Substance: INFLIXIMAB
     Indication: CROHN^S DISEASE
     Route: 042
     Dates: start: 20130425
  2. VORICONAZOLE. [Suspect]
     Active Substance: VORICONAZOLE
     Indication: ASPERGILLUS INFECTION
     Route: 065
     Dates: start: 201401
  3. REMICADE [Suspect]
     Active Substance: INFLIXIMAB
     Indication: CROHN^S DISEASE
     Route: 042
     Dates: start: 201312
  4. PREDNISOLONE. [Concomitant]
     Active Substance: PREDNISOLONE
     Route: 048
  5. PREDNISOLONE. [Concomitant]
     Active Substance: PREDNISOLONE
     Route: 048
     Dates: start: 20140128

REACTIONS (21)
  - Pulmonary haemorrhage [Recovering/Resolving]
  - Aspergillus infection [Recovering/Resolving]
  - Pulmonary oedema [Recovering/Resolving]
  - Hallucination [Recovered/Resolved]
  - Liver function test abnormal [Recovering/Resolving]
  - Rhabdomyolysis [Recovering/Resolving]
  - Culture positive [Recovering/Resolving]
  - Septic shock [Recovering/Resolving]
  - Cerebral haemorrhage [Recovering/Resolving]
  - Critical illness polyneuropathy [Recovering/Resolving]
  - Diarrhoea [Recovering/Resolving]
  - Coronavirus test positive [Recovering/Resolving]
  - Pleural effusion [Recovering/Resolving]
  - Cardiac arrest [Recovering/Resolving]
  - Addison^s disease [Recovering/Resolving]
  - Cardiogenic shock [Recovering/Resolving]
  - Pericardial effusion [Recovering/Resolving]
  - Sleep disorder [Recovering/Resolving]
  - Depression [Recovering/Resolving]
  - Renal failure acute [Recovering/Resolving]
  - Skin ulcer [Recovering/Resolving]

NARRATIVE: CASE EVENT DATE: 201401
